FAERS Safety Report 8326856-8 (Version None)
Quarter: 2012Q2

REPORT INFORMATION
  Report Type: 
  Country: None (occurrence: None)
  Receive Date: 20120501
  Receipt Date: 20110830
  Transmission Date: 20120825
  Serious: Yes (Hospitalization)
  Sender: FDA-Public Use
  Company Number: US-SANOFI-AVENTIS-2011SA055911

PATIENT
  Age: 65 Year
  Sex: Female

DRUGS (16)
  1. APIDRA [Suspect]
     Indication: DIABETES MELLITUS
     Dosage: SLIDING SCALE PRN
     Route: 058
     Dates: start: 20110601, end: 20110701
  2. POTASSIUM CHLORIDE [Concomitant]
  3. NEURONTIN [Concomitant]
     Indication: ARTHRITIS
  4. SOLOSTAR [Suspect]
     Dates: start: 20110701
  5. AMBIEN [Concomitant]
     Route: 048
  6. METOPROLOL TARTRATE [Concomitant]
  7. HUMULIN R [Concomitant]
  8. XANAX [Concomitant]
  9. LANTUS [Suspect]
     Indication: DIABETES MELLITUS
     Dosage: DOSE:25 UNIT(S)
     Route: 058
     Dates: start: 20110701
  10. JANUVIA [Concomitant]
  11. AMARYL [Concomitant]
     Indication: DIABETES MELLITUS
     Route: 048
  12. ORAL ANTIDIABETICS [Concomitant]
     Dates: start: 20110701
  13. ASPIRIN [Concomitant]
  14. SOLOSTAR [Suspect]
     Indication: DIABETES MELLITUS
     Dates: start: 20110601, end: 20110701
  15. BENICAR [Concomitant]
     Dosage: ^40/20^ ONCE A DAY
  16. AMLODIPINE [Concomitant]

REACTIONS (2)
  - HYPERGLYCAEMIA [None]
  - BLOOD GLUCOSE INCREASED [None]
